FAERS Safety Report 8486365-2 (Version None)
Quarter: 2012Q3

REPORT INFORMATION
  Report Type: 
  Country: None (occurrence: None)
  Receive Date: 20120703
  Receipt Date: 20120627
  Transmission Date: 20120928
  Serious: Yes (Other)
  Sender: FDA-Public Use
  Company Number: BA-GLAXOSMITHKLINE-B0802866A

PATIENT
  Age: 67 Year
  Sex: Female

DRUGS (6)
  1. ALPRAZOLAM [Concomitant]
     Indication: NERVOUS SYSTEM DISORDER
  2. BECLOFORTE [Concomitant]
  3. ISOPTIN [Concomitant]
     Indication: ARRHYTHMIA
  4. ANAFRANIL [Concomitant]
     Indication: NERVOUS SYSTEM DISORDER
  5. FLUTICASONE PROPIONATE/SALMETEROL [Suspect]
     Indication: CHRONIC OBSTRUCTIVE PULMONARY DISEASE
     Dosage: 500MCG TWICE PER DAY
     Route: 065
  6. BERODUAL [Concomitant]

REACTIONS (2)
  - HAEMATOMA [None]
  - LEUKOCYTOSIS [None]
